FAERS Safety Report 12262454 (Version 1)
Quarter: 2016Q2

REPORT INFORMATION
  Report Type: Spontaneous
  Country: US (occurrence: None)
  Receive Date: 20160412
  Receipt Date: 20160412
  Transmission Date: 20160815
  Serious: No
  Sender: FDA-Public Use
  Company Number: None

PATIENT
  Age: 28 Year
  Sex: Female
  Weight: 115.21 kg

DRUGS (4)
  1. PROBIOTIC SUPPLEMENT [Concomitant]
  2. AVEENO POSITIVELY RADIANT CC BROAD SPECTRUM SPF30 - FAIR TO LIGHT [Suspect]
     Active Substance: HOMOSALATE\OCTINOXATE\OCTISALATE\OXYBENZONE
     Indication: PROPHYLAXIS AGAINST SOLAR RADIATION
     Dosage: 2.5 OUNCE(S) IN THE MORNING APPLIED TO A SURFACE, USUALLY THE SKIN
     Route: 061
     Dates: start: 20160404, end: 20160409
  3. MULTIVITAMIN [Concomitant]
     Active Substance: VITAMINS
  4. GARLIC GEL TABLET [Concomitant]

REACTIONS (12)
  - Application site pain [None]
  - Application site pruritus [None]
  - Eye pruritus [None]
  - Eye irritation [None]
  - Periorbital oedema [None]
  - Application site reaction [None]
  - Rash [None]
  - Nausea [None]
  - Dyspnoea [None]
  - Application site swelling [None]
  - Application site erythema [None]
  - Headache [None]

NARRATIVE: CASE EVENT DATE: 20160409
